FAERS Safety Report 25172186 (Version 1)
Quarter: 2025Q2

REPORT INFORMATION
  Report Type: Spontaneous
  Country: US (occurrence: US)
  Receive Date: 20250408
  Receipt Date: 20250408
  Transmission Date: 20250716
  Serious: Yes (Death, Hospitalization)
  Sender: MYLAN
  Company Number: US-MYLANLABS-2025M1029629

PATIENT
  Age: 68 Year
  Sex: Male

DRUGS (13)
  1. NOREPINEPHRINE [Suspect]
     Active Substance: NOREPINEPHRINE
     Indication: Septic shock
  2. EPINEPHRINE [Suspect]
     Active Substance: EPINEPHRINE
     Indication: Septic shock
  3. EPOPROSTENOL [Suspect]
     Active Substance: EPOPROSTENOL
     Indication: Septic shock
  4. EPOPROSTENOL [Suspect]
     Active Substance: EPOPROSTENOL
     Indication: Respiratory distress
  5. VASOPRESSIN [Suspect]
     Active Substance: VASOPRESSIN
     Indication: Septic shock
  6. VANCOMYCIN [Concomitant]
     Active Substance: VANCOMYCIN
     Indication: Pneumonia
  7. CEFEPIME [Concomitant]
     Active Substance: CEFEPIME HYDROCHLORIDE
     Indication: Pneumonia
  8. CEFIDEROCOL [Concomitant]
     Active Substance: CEFIDEROCOL
     Indication: Pneumonia
  9. CEFIDEROCOL [Concomitant]
     Active Substance: CEFIDEROCOL
     Indication: Acinetobacter infection
  10. METRONIDAZOLE [Concomitant]
     Active Substance: METRONIDAZOLE
     Indication: Pneumonia
  11. METRONIDAZOLE [Concomitant]
     Active Substance: METRONIDAZOLE
     Indication: Acinetobacter infection
  12. GENTAMICIN [Concomitant]
     Active Substance: GENTAMICIN
     Indication: Pneumonia
  13. GENTAMICIN [Concomitant]
     Active Substance: GENTAMICIN
     Indication: Acinetobacter infection

REACTIONS (1)
  - Drug ineffective [Fatal]
